FAERS Safety Report 4764543-3 (Version None)
Quarter: 2005Q3

REPORT INFORMATION
  Report Type: 
  Country: None (occurrence: None)
  Receive Date: 20050909
  Receipt Date: 20050830
  Transmission Date: 20060218
  Serious: Yes (Other)
  Sender: FDA-Public Use
  Company Number: PHBS2005JP12766

PATIENT

DRUGS (1)
  1. RITALIN [Suspect]
     Route: 065

REACTIONS (1)
  - HALLUCINATION, VISUAL [None]
